FAERS Safety Report 5193117-8 (Version None)
Quarter: 2006Q4

REPORT INFORMATION
  Report Type: 
  Country: None (occurrence: None)
  Receive Date: 20061228
  Receipt Date: 20060508
  Transmission Date: 20070319
  Serious: No
  Sender: FDA-Public Use
  Company Number: US-GLAXOSMITHKLINE-A0604663A

PATIENT
  Age: 92 Year
  Sex: Male
  Weight: 95.5 kg

DRUGS (7)
  1. AVODART [Suspect]
     Indication: BENIGN PROSTATIC HYPERPLASIA
     Dosage: .5MG PER DAY
     Route: 048
     Dates: start: 20060101
  2. GLIPIZIDE [Concomitant]
  3. ASPIRIN [Concomitant]
     Dosage: 81MG PER DAY
  4. SYNTHROID [Concomitant]
     Dosage: 100MG PER DAY
  5. PROBENECID [Concomitant]
  6. PREVACID [Concomitant]
     Dosage: 15MG PER DAY
  7. LUNESTA [Concomitant]
     Dosage: 3MG AT NIGHT

REACTIONS (1)
  - VISUAL DISTURBANCE [None]
